FAERS Safety Report 7353367-9 (Version None)
Quarter: 2011Q1

REPORT INFORMATION
  Report Type: 
  Country: None (occurrence: None)
  Receive Date: 20110315
  Receipt Date: 20110309
  Transmission Date: 20110831
  Serious: Yes (Life-Threatening, Hospitalization)
  Sender: FDA-Public Use
  Company Number: GB-PFIZER INC-2011052644

PATIENT
  Age: 88 Year
  Sex: Female

DRUGS (4)
  1. BISACODYL [Concomitant]
  2. RAMIPRIL [Concomitant]
  3. EXEMESTANE [Suspect]
     Dosage: UNK
     Route: 048
     Dates: end: 20110228
  4. OMEPRAZOLE [Concomitant]

REACTIONS (2)
  - PANCREATITIS [None]
  - BLOOD AMYLASE INCREASED [None]
